FAERS Safety Report 17683013 (Version 32)
Quarter: 2021Q4

REPORT INFORMATION
  Report Type: Report from Study
  Country: KR (occurrence: None)
  Receive Date: 20200420
  Receipt Date: 20211214
  Transmission Date: 20220303
  Serious: Yes (Hospitalization)
  Sender: FDA-Public Use
  Company Number: KR-ROCHE-2579831

PATIENT
  Age: 80 Year
  Sex: Male
  Weight: 50 kg

DRUGS (72)
  1. PLACEBO [Suspect]
     Active Substance: UNSPECIFIED INGREDIENT
     Indication: Small cell lung cancer extensive stage
     Dosage: DATE OF MOST RECENT DOSE OF PLACEBO PRIOR TO AE ONSET: 17/MAR/2020
     Route: 042
     Dates: start: 20200317
  2. CARBOPLATIN [Suspect]
     Active Substance: CARBOPLATIN
     Indication: Small cell lung cancer extensive stage
     Dosage: DATE OF MOST RECENT DOSE OF CARBOPLATIN PRIOR TO AE/SAE ONSET : 17/MAR/2020 282.4 MG
     Route: 042
     Dates: start: 20200317
  3. ETOPOSIDE [Suspect]
     Active Substance: ETOPOSIDE
     Indication: Small cell lung cancer extensive stage
     Dosage: DATE OF MOST RECENT DOSE  OF ETOPOSIDE (150 MG) PRIOR TO  SAE ONSET : 19/MAR/2020
     Route: 042
     Dates: start: 20200317
  4. ATEZOLIZUMAB [Suspect]
     Active Substance: ATEZOLIZUMAB
     Indication: Small cell lung cancer extensive stage
     Dosage: DATE OF MOST RECENT DOSE OF ATEZOLIZUMAB PRIOR TO AE/SAE ONSET: 17/MAR/2020 1200 MG
     Route: 041
     Dates: start: 20200317
  5. PANTOPRAZOLE SODIUM [Concomitant]
     Active Substance: PANTOPRAZOLE SODIUM
     Route: 042
     Dates: start: 20200331, end: 20200403
  6. PANTOPRAZOLE SODIUM [Concomitant]
     Active Substance: PANTOPRAZOLE SODIUM
     Route: 048
     Dates: start: 20200409, end: 20200411
  7. DEXAMETHASONE [Concomitant]
     Active Substance: DEXAMETHASONE
     Route: 042
     Dates: start: 20200317, end: 20200317
  8. DEXAMETHASONE [Concomitant]
     Active Substance: DEXAMETHASONE
     Route: 048
     Dates: start: 20200317, end: 20200613
  9. DEXAMETHASONE [Concomitant]
     Active Substance: DEXAMETHASONE
     Route: 042
     Dates: start: 20200318, end: 20200612
  10. AKYNZEO [Concomitant]
     Active Substance: NETUPITANT\PALONOSETRON HYDROCHLORIDE
     Route: 048
     Dates: start: 20200317, end: 20200610
  11. GASTER [Concomitant]
     Active Substance: FAMOTIDINE
     Route: 048
     Dates: start: 20200317, end: 20200613
  12. GASTER [Concomitant]
     Active Substance: FAMOTIDINE
     Route: 048
     Dates: start: 20200320, end: 20200613
  13. ROCURONIUM BROMIDE [Concomitant]
     Active Substance: ROCURONIUM BROMIDE
     Indication: Anaesthesia
     Route: 042
     Dates: start: 20200402, end: 20200402
  14. ETOMIDATE [Concomitant]
     Active Substance: ETOMIDATE
     Indication: Anaesthesia
     Route: 042
     Dates: start: 20200402, end: 20200402
  15. MIDAZOLAM [Concomitant]
     Active Substance: MIDAZOLAM
     Indication: Anaesthesia
     Route: 042
     Dates: start: 20200402, end: 20200402
  16. MIDAZOLAM [Concomitant]
     Active Substance: MIDAZOLAM
     Indication: Endoscopy
     Route: 042
     Dates: start: 20200609, end: 20200609
  17. MIDAZOLAM [Concomitant]
     Active Substance: MIDAZOLAM
     Route: 042
     Dates: start: 20210712, end: 20210712
  18. ULTIVA [Concomitant]
     Active Substance: REMIFENTANIL HYDROCHLORIDE
     Indication: Anaesthesia
     Route: 042
     Dates: start: 20200402, end: 20200402
  19. DICHLOZID [Concomitant]
     Indication: Hypertension
     Route: 048
     Dates: start: 20200408, end: 20200414
  20. DICHLOZID [Concomitant]
     Route: 048
     Dates: start: 20200727
  21. DICHLOZID [Concomitant]
     Route: 048
     Dates: start: 20200408, end: 20200409
  22. POTASSIUM CHLORIDE [Concomitant]
     Active Substance: POTASSIUM CHLORIDE
     Indication: Hypokalaemia
     Route: 048
     Dates: start: 20200405, end: 20200409
  23. PHAZYME COMPLEX [Concomitant]
     Indication: Dyspepsia
     Route: 048
     Dates: start: 20200402, end: 20200402
  24. HYDROCHLOROTHIAZIDE\LOSARTAN POTASSIUM [Concomitant]
     Active Substance: HYDROCHLOROTHIAZIDE\LOSARTAN POTASSIUM
     Indication: Hypertension
     Route: 048
     Dates: start: 2017, end: 20200729
  25. HUMAN RED BLOOD CELL [Concomitant]
     Active Substance: HUMAN RED BLOOD CELL
     Indication: Anaemia
     Dosage: 1 OTHER
     Route: 042
     Dates: start: 20200331, end: 20200331
  26. HUMAN RED BLOOD CELL [Concomitant]
     Active Substance: HUMAN RED BLOOD CELL
     Dosage: 2 OTHER
     Route: 042
     Dates: start: 20200603, end: 20200603
  27. HUMAN RED BLOOD CELL [Concomitant]
     Active Substance: HUMAN RED BLOOD CELL
     Dosage: 2 OTHER
     Route: 042
     Dates: start: 20200701, end: 20200701
  28. HUMAN RED BLOOD CELL [Concomitant]
     Active Substance: HUMAN RED BLOOD CELL
     Dosage: 2 OTHER
     Route: 042
     Dates: start: 20200506, end: 20200506
  29. SPEETIN [Concomitant]
     Indication: Hyperlipidaemia
     Route: 048
     Dates: start: 20200413
  30. DIETARY SUPPLEMENT\HERBALS\MILK THISTLE [Concomitant]
     Active Substance: DIETARY SUPPLEMENT\HERBALS\MILK THISTLE
     Route: 048
     Dates: start: 20200407, end: 20200407
  31. IPRATROPIUM [Concomitant]
     Active Substance: IPRATROPIUM
     Indication: Atrial fibrillation
     Dates: start: 20200401, end: 20200402
  32. XYZAL [Concomitant]
     Active Substance: LEVOCETIRIZINE DIHYDROCHLORIDE
     Indication: Pruritus
     Route: 048
     Dates: start: 20200901, end: 20200915
  33. XYZAL [Concomitant]
     Active Substance: LEVOCETIRIZINE DIHYDROCHLORIDE
     Indication: Urticaria
     Route: 048
     Dates: start: 20210609
  34. XYZAL [Concomitant]
     Active Substance: LEVOCETIRIZINE DIHYDROCHLORIDE
     Indication: Rash
  35. LOSARTAN CJ [Concomitant]
     Indication: Hypertension
     Route: 048
     Dates: start: 20200407, end: 20200409
  36. URSODIOL [Concomitant]
     Active Substance: URSODIOL
     Indication: Liver function test increased
     Route: 048
     Dates: start: 20200407, end: 20200407
  37. URSODIOL [Concomitant]
     Active Substance: URSODIOL
     Route: 048
     Dates: start: 20210714
  38. LOSARTAN POTASSIUM [Concomitant]
     Active Substance: LOSARTAN POTASSIUM
     Indication: Hypertension
     Route: 048
     Dates: start: 20200404, end: 20200407
  39. METHYLPREDNISOLONE SODIUM SUCCINATE [Concomitant]
     Active Substance: METHYLPREDNISOLONE SODIUM SUCCINATE
     Indication: Wheezing
     Route: 042
     Dates: start: 20200405, end: 20200408
  40. METHYLPREDNISOLONE SODIUM SUCCINATE [Concomitant]
     Active Substance: METHYLPREDNISOLONE SODIUM SUCCINATE
     Route: 042
     Dates: start: 20200402, end: 20200404
  41. METHYLPREDNISOLONE SODIUM SUCCINATE [Concomitant]
     Active Substance: METHYLPREDNISOLONE SODIUM SUCCINATE
     Route: 042
     Dates: start: 20210507, end: 20210507
  42. METHYLPREDNISOLONE SODIUM SUCCINATE [Concomitant]
     Active Substance: METHYLPREDNISOLONE SODIUM SUCCINATE
     Route: 042
     Dates: start: 20210515, end: 20210515
  43. METHYLPREDNISOLONE SODIUM SUCCINATE [Concomitant]
     Active Substance: METHYLPREDNISOLONE SODIUM SUCCINATE
     Route: 042
     Dates: start: 20210625, end: 20210625
  44. AMLODIPINE OROTATE [Concomitant]
     Active Substance: AMLODIPINE OROTATE
     Indication: Hypertension
     Route: 048
     Dates: start: 20200402, end: 20200405
  45. ROCURONIUM BROMIDE [Concomitant]
     Active Substance: ROCURONIUM BROMIDE
     Route: 042
     Dates: start: 20200402, end: 20200402
  46. HEXAMEDINE [Concomitant]
     Route: 061
     Dates: start: 20200331, end: 20200407
  47. TACENOL ER [Concomitant]
     Route: 048
     Dates: start: 20200401, end: 20200401
  48. TACENOL ER [Concomitant]
     Route: 048
     Dates: start: 20201125, end: 20201125
  49. CHLORPHENIRAMINE MALEATE [Concomitant]
     Active Substance: CHLORPHENIRAMINE MALEATE
     Route: 042
     Dates: start: 20210507, end: 20210507
  50. MOKTIN [Concomitant]
     Route: 048
     Dates: start: 20210103, end: 20210105
  51. MOKTIN [Concomitant]
     Route: 048
     Dates: start: 20210219, end: 20210221
  52. MOKTIN [Concomitant]
     Route: 048
     Dates: start: 20201007, end: 20201009
  53. MOKTIN [Concomitant]
     Route: 048
     Dates: start: 20200827, end: 20200829
  54. MOKTIN [Concomitant]
     Route: 048
     Dates: start: 20201119, end: 20201121
  55. MOKTIN [Concomitant]
     Route: 048
     Dates: start: 20210506, end: 20210507
  56. MOKTIN [Concomitant]
     Route: 048
     Dates: start: 20210514, end: 20210517
  57. MOKTIN [Concomitant]
     Route: 048
     Dates: start: 20210624, end: 20210624
  58. FESTAL PLUS [Concomitant]
     Active Substance: DIMETHICONE\PANCRELIPASE\URSODIOL
     Indication: Dyspepsia
     Route: 048
     Dates: start: 20200221, end: 20200506
  59. DILTIAZEM HYDROCHLORIDE [Concomitant]
     Active Substance: DILTIAZEM HYDROCHLORIDE
     Indication: Hypertension
     Route: 048
     Dates: start: 20200406
  60. DILTIAZEM HYDROCHLORIDE [Concomitant]
     Active Substance: DILTIAZEM HYDROCHLORIDE
     Indication: Cardiac failure
  61. PREDNISOLONE [Concomitant]
     Active Substance: PREDNISOLONE
     Route: 048
     Dates: start: 20210506, end: 20210506
  62. PREDNISOLONE [Concomitant]
     Active Substance: PREDNISOLONE
     Route: 048
     Dates: start: 20210514, end: 20210514
  63. PREDNISOLONE [Concomitant]
     Active Substance: PREDNISOLONE
     Route: 048
     Dates: start: 20210624, end: 20210624
  64. PREDNISOLONE [Concomitant]
     Active Substance: PREDNISOLONE
     Route: 048
     Dates: start: 20210902
  65. PREDNISOLONE [Concomitant]
     Active Substance: PREDNISOLONE
     Route: 048
     Dates: start: 20200409, end: 20200409
  66. LASIX [Concomitant]
     Active Substance: FUROSEMIDE
     Indication: Ascites
     Route: 048
     Dates: start: 20210708, end: 20210727
  67. LASIX [Concomitant]
     Active Substance: FUROSEMIDE
     Route: 048
     Dates: start: 20210728
  68. SPIRONOLACTONE [Concomitant]
     Active Substance: SPIRONOLACTONE
     Indication: Ascites
     Route: 048
     Dates: start: 20210708, end: 20210727
  69. SPIRONOLACTONE [Concomitant]
     Active Substance: SPIRONOLACTONE
     Indication: Hepatic cirrhosis
     Route: 048
     Dates: start: 20210728
  70. PANTOPRAZOLE SODIUM [Concomitant]
     Active Substance: PANTOPRAZOLE SODIUM
     Route: 048
     Dates: start: 20210712
  71. LAMINA-G [Concomitant]
     Route: 048
     Dates: start: 20210712
  72. PROPRANOLOL HYDROCHLORIDE [Concomitant]
     Active Substance: PROPRANOLOL HYDROCHLORIDE
     Indication: Hypertension
     Route: 048
     Dates: start: 20210728

REACTIONS (4)
  - Febrile neutropenia [Recovered/Resolved]
  - Atrial fibrillation [Not Recovered/Not Resolved]
  - Cardiac failure [Not Recovered/Not Resolved]
  - Asthenia [Recovered/Resolved]

NARRATIVE: CASE EVENT DATE: 20200327
